FAERS Safety Report 5924009-1 (Version None)
Quarter: 2008Q4

REPORT INFORMATION
  Report Type: 
  Country: None (occurrence: None)
  Receive Date: 20081020
  Receipt Date: 20081009
  Transmission Date: 20090506
  Serious: Yes (Hospitalization, Other)
  Sender: FDA-Public Use
  Company Number: PHHY2008JP23372

PATIENT
  Age: 43 Year
  Sex: Female

DRUGS (3)
  1. CYCLOSPORINE [Suspect]
     Indication: APLASTIC ANAEMIA
  2. CYCLOPHOSPHAMIDE [Concomitant]
     Dosage: 60 MG/KG, BID
  3. IRRADIATION [Concomitant]
     Dosage: 12GY

REACTIONS (12)
  - ACUTE GRAFT VERSUS HOST DISEASE IN SKIN [None]
  - ANAPLASTIC LARGE CELL LYMPHOMA T- AND NULL-CELL TYPES [None]
  - ASPARTATE AMINOTRANSFERASE INCREASED [None]
  - BONE MARROW FAILURE [None]
  - CHRONIC GRAFT VERSUS HOST DISEASE [None]
  - HEPATIC FIBROSIS [None]
  - LYMPHADENOPATHY [None]
  - PORTAL VEIN PRESSURE INCREASED [None]
  - PYREXIA [None]
  - STEM CELL TRANSPLANT [None]
  - TRANSAMINASES INCREASED [None]
  - VARICES OESOPHAGEAL [None]
